FAERS Safety Report 9057703 (Version 4)
Quarter: 2015Q2

REPORT INFORMATION
  Report Type: Spontaneous
  Country: US (occurrence: US)
  Receive Date: 20130204
  Receipt Date: 20150519
  Transmission Date: 20150821
  Serious: No
  Sender: FDA-Public Use
  Company Number: US-PFIZER INC-2013038397

PATIENT
  Age: 65 Year
  Sex: Female

DRUGS (1)
  1. DAYPRO [Suspect]
     Active Substance: OXAPROZIN
     Indication: ANTIINFLAMMATORY THERAPY
     Dosage: UNK
     Dates: start: 2006

REACTIONS (1)
  - Drug hypersensitivity [Unknown]
